FAERS Safety Report 9644931 (Version 5)
Quarter: 2013Q4

REPORT INFORMATION
  Report Type: Spontaneous
  Country: US (occurrence: US)
  Receive Date: 20131025
  Receipt Date: 20131209
  Transmission Date: 20140711
  Serious: No
  Sender: FDA-Public Use
  Company Number: US-PFIZER INC-2013303490

PATIENT
  Age: 24 Year
  Sex: Female

DRUGS (3)
  1. LYRICA [Suspect]
     Dosage: 150 MG (2 TABS OF 75 MG), 2X/DAY
  2. LYRICA [Suspect]
     Dosage: 75 MG, UNK
  3. VITAMIN D [Concomitant]
     Dosage: UNK

REACTIONS (2)
  - Mental disorder [Unknown]
  - Impaired work ability [Unknown]
